FAERS Safety Report 9231697 (Version 1)
Quarter: 2013Q2

REPORT INFORMATION
  Report Type: Spontaneous
  Country: US (occurrence: US)
  Receive Date: 20130415
  Receipt Date: 20130415
  Transmission Date: 20140414
  Serious: No
  Sender: FDA-Public Use
  Company Number: US-BAYER-2013-047343

PATIENT
  Age: 79 Year
  Sex: Female
  Weight: 72.56 kg

DRUGS (4)
  1. ALEVE TABLET [Suspect]
     Indication: PAIN
     Dosage: 1-2 DF,UNK
     Route: 048
     Dates: start: 2008
  2. LEVOTHYROXINE [Concomitant]
  3. CATAPRES [Concomitant]
  4. ARICEPT [Concomitant]

REACTIONS (2)
  - Drug ineffective [None]
  - Incorrect drug administration duration [None]
